FAERS Safety Report 20038923 (Version 1)
Quarter: 2021Q4

REPORT INFORMATION
  Report Type: Spontaneous
  Country: US (occurrence: US)
  Receive Date: 20211105
  Receipt Date: 20211105
  Transmission Date: 20220303
  Serious: No
  Sender: FDA-Public Use
  Company Number: US-MYLANLABS-2021M1075096

PATIENT
  Sex: Female
  Weight: 108 kg

DRUGS (2)
  1. HALOPERIDOL DECANOATE [Suspect]
     Active Substance: HALOPERIDOL DECANOATE
     Indication: Psychotic disorder
     Dosage: 100 MILLIGRAM
     Route: 030
  2. HALOPERIDOL DECANOATE [Suspect]
     Active Substance: HALOPERIDOL DECANOATE
     Dosage: 300 MILLIGRAM, Q3W, UP TO 300MG EVERY THREE WEEKS
     Route: 030

REACTIONS (1)
  - Injection site urticaria [Recovering/Resolving]
